FAERS Safety Report 11271258 (Version 1)
Quarter: 2015Q3

REPORT INFORMATION
  Report Type: Spontaneous
  Country: MA (occurrence: MA)
  Receive Date: 20150714
  Receipt Date: 20150714
  Transmission Date: 20151125
  Serious: Yes (Hospitalization)
  Sender: FDA-Public Use
  Company Number: PHHY2015MA082546

PATIENT
  Age: 34 Year
  Sex: Male

DRUGS (1)
  1. PARACETAMOL [Suspect]
     Active Substance: ACETAMINOPHEN
     Dosage: 500 MG, UNK
     Route: 065

REACTIONS (7)
  - Skin necrosis [Recovering/Resolving]
  - Tachypnoea [Recovering/Resolving]
  - Toxic epidermal necrolysis [Recovering/Resolving]
  - Conjunctivitis [Recovering/Resolving]
  - Rash erythematous [Recovering/Resolving]
  - Blister [Recovering/Resolving]
  - Cheilitis [Recovering/Resolving]
